FAERS Safety Report 20367749 (Version 2)
Quarter: 2022Q1

REPORT INFORMATION
  Report Type: Spontaneous
  Country: US (occurrence: US)
  Receive Date: 20220124
  Receipt Date: 20220202
  Transmission Date: 20220423
  Serious: No
  Sender: FDA-Public Use
  Company Number: US-AMGEN-USASP2022009941

PATIENT
  Age: 68 Year
  Sex: Male
  Weight: 77 kg

DRUGS (2)
  1. KYPROLIS [Suspect]
     Active Substance: CARFILZOMIB
     Indication: Malignant melanoma
     Dosage: 30 MILLIGRAM
     Route: 065
  2. KYPROLIS [Suspect]
     Active Substance: CARFILZOMIB
     Dosage: 10 MILLIGRAM
     Route: 065

REACTIONS (1)
  - Poor venous access [Unknown]

NARRATIVE: CASE EVENT DATE: 20220103
